FAERS Safety Report 7809703 (Version 2)
Quarter: 2013Q3

REPORT INFORMATION
  Report Type: Spontaneous
  Country: None (occurrence: None)
  Receive Date: 20110126
  Receipt Date: 20130709
  Transmission Date: 20140515
  Serious: Yes (Hospitalization, Other)
  Sender: FDA-Public Use
  Company Number: AUR-APL-2011-00285

PATIENT
  Age: 77 Year
  Sex: Female
  Weight: 65 kg

DRUGS (5)
  1. CITALOPRAM [Suspect]
     Indication: PRODUCT USED FOR UNKNOWN INDICATION
     Dosage: ONCE AT 08:00
     Route: 048
     Dates: start: 20090723, end: 20090723
  2. TEMESTA (LORAZEPAM) [Concomitant]
  3. ASPIRIN CARDIO (ACETYLSALICYLIC ACID) [Concomitant]
  4. CONCOR (BISOPROLOL FUMARATE) [Concomitant]
  5. SEROQUEL (QUETIAPINE FUMARATE) [Concomitant]

REACTIONS (8)
  - Agitation [None]
  - Restlessness [None]
  - Cold sweat [None]
  - Tension [None]
  - Delirium [None]
  - Abnormal behaviour [None]
  - Serotonin syndrome [None]
  - Blood pressure increased [None]
